FAERS Safety Report 4783590-9 (Version None)
Quarter: 2005Q3

REPORT INFORMATION
  Report Type: 
  Country: None (occurrence: None)
  Receive Date: 20050928
  Receipt Date: 20050909
  Transmission Date: 20060218
  Serious: Yes (Hospitalization)
  Sender: FDA-Public Use
  Company Number: EWC050945802

PATIENT
  Age: 59 Year
  Sex: Male

DRUGS (6)
  1. OLANZAPINE-LONG-ACTING            (DEPOT) [Suspect]
     Indication: SCHIZOPHRENIA
     Dosage: 405 MG
     Route: 030
     Dates: start: 20050721
  2. PLACEBO [Suspect]
     Indication: SCHIZOPHRENIA
     Dates: start: 20050623
  3. DIGOXIN [Concomitant]
  4. NITRODYL (GLYCERYL TRINITRATE) [Concomitant]
  5. ANGORON (AMIODARONE HYDROCHLORIDE) [Concomitant]
  6. SALOSPIR (ACETYLSALICYLIC ACID) [Concomitant]

REACTIONS (4)
  - DUODENAL ULCER [None]
  - GASTRIC ULCER [None]
  - HAEMATOCRIT DECREASED [None]
  - UPPER GASTROINTESTINAL HAEMORRHAGE [None]
